FAERS Safety Report 25544397 (Version 2)
Quarter: 2025Q3

REPORT INFORMATION
  Report Type: Report from Study
  Country: CA (occurrence: CA)
  Receive Date: 20250711
  Receipt Date: 20250717
  Transmission Date: 20251021
  Serious: Yes (Hospitalization, Other)
  Sender: PFIZER
  Company Number: CA-PFIZER INC-202500139124

PATIENT
  Age: 38 Year
  Sex: Male

DRUGS (4)
  1. ADALIMUMAB [Suspect]
     Active Substance: ADALIMUMAB
     Indication: Crohn^s disease
     Route: 058
  2. ADALIMUMAB [Suspect]
     Active Substance: ADALIMUMAB
     Indication: Colitis ulcerative
     Dosage: (1 EVERY 1 WEEKS)
     Route: 058
  3. ADALIMUMAB [Suspect]
     Active Substance: ADALIMUMAB
     Indication: Ankylosing spondylitis
  4. IRON [Concomitant]
     Active Substance: IRON

REACTIONS (6)
  - Aphthous ulcer [Unknown]
  - Arthralgia [Unknown]
  - Crohn^s disease [Unknown]
  - Intentional product use issue [Unknown]
  - Localised infection [Unknown]
  - Therapy non-responder [Unknown]
